FAERS Safety Report 8588751-9 (Version None)
Quarter: 2012Q3

REPORT INFORMATION
  Report Type: 
  Country: None (occurrence: None)
  Receive Date: 20120813
  Receipt Date: 20120808
  Transmission Date: 20120928
  Serious: Yes (Other)
  Sender: FDA-Public Use
  Company Number: PHHY2012FR069362

PATIENT
  Age: 76 Year
  Sex: Male

DRUGS (2)
  1. ACETAMINOPHEN [Concomitant]
  2. ZOMETA [Suspect]
     Dosage: 4 MG / 100 ML
     Route: 042

REACTIONS (3)
  - DYSPEPSIA [None]
  - TERMINAL STATE [None]
  - DRUG INTOLERANCE [None]
